FAERS Safety Report 4956800-2 (Version None)
Quarter: 2006Q1

REPORT INFORMATION
  Report Type: 
  Country: None (occurrence: None)
  Receive Date: 20060323
  Receipt Date: 20060310
  Transmission Date: 20060701
  Serious: Yes (Hospitalization)
  Sender: FDA-Public Use
  Company Number: 2006035599

PATIENT
  Age: 24 Year
  Sex: Female

DRUGS (1)
  1. CLINDAMYCIN HCL [Suspect]
     Indication: ILL-DEFINED DISORDER
     Dosage: 150 MG, ORAL
     Route: 048
     Dates: start: 20010101

REACTIONS (3)
  - EYELID OEDEMA [None]
  - FACE OEDEMA [None]
  - URTICARIA [None]
